FAERS Safety Report 4810581-1 (Version None)
Quarter: 2005Q4

REPORT INFORMATION
  Report Type: 
  Country: None (occurrence: None)
  Receive Date: 20051025
  Receipt Date: 20051025
  Transmission Date: 20060501
  Serious: No
  Sender: FDA-Public Use
  Company Number: None

PATIENT
  Age: 42 Year
  Sex: Female
  Weight: 62.1428 kg

DRUGS (1)
  1. SHOWER SOOTHERS SUDACARE/ PFIZER [Suspect]
     Indication: RESPIRATORY DISORDER

REACTIONS (5)
  - CONTUSION [None]
  - ERYTHEMA [None]
  - SKIN DISORDER [None]
  - SKIN HAEMORRHAGE [None]
  - SKIN IRRITATION [None]
